FAERS Safety Report 21222103 (Version 1)
Quarter: 2022Q3

REPORT INFORMATION
  Report Type: Spontaneous
  Country: US (occurrence: None)
  Receive Date: 20220816
  Receipt Date: 20220816
  Transmission Date: 20221027
  Serious: Yes (Hospitalization)
  Sender: FDA-Public Use
  Company Number: None

PATIENT
  Age: 78 Year
  Sex: Male
  Weight: 82.1 kg

DRUGS (12)
  1. EVEROLIMUS [Suspect]
     Active Substance: EVEROLIMUS
     Indication: Renal cancer
     Dosage: FREQUENCY : DAILY;?
     Route: 048
  2. ATORVASTATIN [Concomitant]
     Active Substance: ATORVASTATIN
  3. CARBAMAZEPINE [Concomitant]
     Active Substance: CARBAMAZEPINE
  4. FLUTICASONE [Concomitant]
     Active Substance: FLUTICASONE
  5. GABAPENTIN [Concomitant]
     Active Substance: GABAPENTIN
  6. LOMOTIL [Concomitant]
     Active Substance: ATROPINE SULFATE\DIPHENOXYLATE HYDROCHLORIDE
  7. LOSARTAN [Concomitant]
     Active Substance: LOSARTAN
  8. MESALAMINE [Concomitant]
     Active Substance: MESALAMINE
  9. VITAMINS [Concomitant]
     Active Substance: VITAMINS
  10. MINERALS [Concomitant]
     Active Substance: MINERALS
  11. PAZOPANIB [Concomitant]
     Active Substance: PAZOPANIB
  12. PROCHLORPERAZINE [Concomitant]
     Active Substance: PROCHLORPERAZINE

REACTIONS (2)
  - Dyspnoea [None]
  - Thrombosis [None]

NARRATIVE: CASE EVENT DATE: 20220815
